FAERS Safety Report 4854773-4 (Version None)
Quarter: 2005Q4

REPORT INFORMATION
  Report Type: 
  Country: None (occurrence: None)
  Receive Date: 20051214
  Receipt Date: 20051214
  Transmission Date: 20060501
  Serious: Yes (Hospitalization)
  Sender: FDA-Public Use
  Company Number: None

PATIENT
  Age: 67 Year
  Sex: Male
  Weight: 61.6892 kg

DRUGS (20)
  1. CARBAMAZEPINE [Suspect]
     Indication: BIPOLAR DISORDER
     Dosage: 200 MG   Q 12 HOURS   PO
     Route: 048
  2. CARBAMAZEPINE [Suspect]
     Indication: SCHIZOAFFECTIVE DISORDER
     Dosage: 200 MG   Q 12 HOURS   PO
     Route: 048
  3. OXCARBAZEPINE [Suspect]
     Indication: BIPOLAR DISORDER
     Dosage: 300 MG   BID   PO
     Route: 048
  4. OXCARBAZEPINE [Suspect]
     Indication: SCHIZOAFFECTIVE DISORDER
     Dosage: 300 MG   BID   PO
     Route: 048
  5. ACETAMINOPHEN [Concomitant]
  6. ALBUTEROL/IPRATROPIUM  -COMBIVENT- [Concomitant]
  7. ALUMINUM OH/MAGNESIUM OH/SIMETH [Concomitant]
  8. ALOH/MGOH/SIMTH  XTRA STRENGTH [Concomitant]
  9. ASPIRIN [Concomitant]
  10. FOLIC ACID [Concomitant]
  11. GLYBURIDE [Concomitant]
  12. INSULIN REG HUMAN INJ [Concomitant]
  13. LISINOPRIL [Concomitant]
  14. LOPERAMIDE HCL [Concomitant]
  15. MAGNESIUM HYDROXIDE TAB [Concomitant]
  16. METFORMIN HCL [Concomitant]
  17. METOPROLOL TARTRATE [Concomitant]
  18. MULTIVITAMIN [Concomitant]
  19. RISPERIDONE [Concomitant]
  20. THIAMINE HCL [Concomitant]

REACTIONS (1)
  - HYPONATRAEMIA [None]
